FAERS Safety Report 9242803 (Version 1)
Quarter: 2013Q2

REPORT INFORMATION
  Report Type: Spontaneous
  Country: US (occurrence: US)
  Receive Date: 20130418
  Receipt Date: 20130418
  Transmission Date: 20140414
  Serious: Yes (Hospitalization)
  Sender: FDA-Public Use
  Company Number: US-SANOFI-AVENTIS-2012SA090337

PATIENT
  Age: 66 Year
  Sex: Male
  Weight: 104.3 kg

DRUGS (22)
  1. LOVENOX [Suspect]
     Indication: DEEP VEIN THROMBOSIS
     Route: 065
     Dates: start: 20100519, end: 20100523
  2. LOVENOX [Suspect]
     Indication: DEEP VEIN THROMBOSIS
     Route: 065
     Dates: start: 20100602, end: 20100613
  3. COUMADIN [Suspect]
     Indication: DEEP VEIN THROMBOSIS
     Route: 065
     Dates: start: 20100517, end: 20100519
  4. COUMADIN [Suspect]
     Indication: DEEP VEIN THROMBOSIS
     Route: 065
     Dates: start: 20100518, end: 20100518
  5. COUMADIN [Suspect]
     Indication: DEEP VEIN THROMBOSIS
     Route: 065
     Dates: start: 20100517, end: 20100608
  6. BLINDED THERAPY [Suspect]
     Indication: RHEUMATOID ARTHRITIS
     Dosage: FORM: INFUSION?FREQUENCY: 2 IN 1 M (DAY 1 AND DAY 15)
     Route: 042
     Dates: start: 20070529
  7. HEPARIN [Suspect]
     Indication: DEEP VEIN THROMBOSIS
     Dosage: DOSE:34000 UNIT(S)
     Route: 065
     Dates: start: 20100517, end: 20100517
  8. HEPARIN [Suspect]
     Indication: DEEP VEIN THROMBOSIS
     Dosage: DOSE:27000 UNIT(S)
     Route: 065
     Dates: start: 20100518, end: 20100518
  9. ALL OTHER THERAPEUTIC PRODUCTS [Concomitant]
     Dates: start: 20100504, end: 20100516
  10. HYDROCODONE [Concomitant]
     Dosage: DOSING AMT 10/325
     Dates: start: 20100504
  11. METFORMIN [Concomitant]
     Dates: start: 20100504
  12. PREDNISOLONE [Concomitant]
     Dates: start: 20100504, end: 20100516
  13. SIMVASTATIN [Concomitant]
     Dates: start: 20100506
  14. TENORETIC [Concomitant]
     Dosage: DOSING AMT: 50/25 MG
     Dates: start: 20100504
  15. ATENOLOL [Concomitant]
  16. FELODIPINE [Concomitant]
  17. ETODOLAC [Concomitant]
  18. MULTIVITAMINS [Concomitant]
  19. METHOTREXATE [Concomitant]
  20. FOLIC ACID [Concomitant]
  21. FLOMAX ^CHIESI^ [Concomitant]
  22. DICLOFENAC [Concomitant]

REACTIONS (1)
  - Duodenal ulcer haemorrhage [Recovered/Resolved]
